FAERS Safety Report 8762780 (Version 1)
Quarter: 2012Q4

REPORT INFORMATION
  Report Type: 
  Country: US (occurrence: US)
  Receive Date: 20120828
  Receipt Date: 20120828
  Transmission Date: 20130627
  Serious: Yes (Other)
  Sender: FDA-Public Use
  Company Number: US-PFIZER INC-2012207813

PATIENT
  Sex: Female

DRUGS (3)
  1. GABAPENTIN [Suspect]
     Indication: PERIPHERAL VASCULAR DISORDER
     Dosage: 100 mg, 2x/day
     Route: 048
     Dates: end: 201207
  2. GABAPENTIN [Suspect]
     Indication: SPINAL COLUMN STENOSIS
     Dosage: 100 mg, 3x/day
     Route: 048
     Dates: start: 201207
  3. WELCHOL [Concomitant]
     Indication: BLOOD CHOLESTEROL INCREASED
     Dosage: UNK
     Dates: end: 201207

REACTIONS (3)
  - Peripheral vascular disorder [Not Recovered/Not Resolved]
  - Hepatic enzyme increased [Not Recovered/Not Resolved]
  - Off label use [Not Recovered/Not Resolved]
